FAERS Safety Report 24937452 (Version 1)
Quarter: 2025Q1

REPORT INFORMATION
  Report Type: Spontaneous
  Country: JP (occurrence: JP)
  Receive Date: 20250206
  Receipt Date: 20250206
  Transmission Date: 20250409
  Serious: Yes (Hospitalization, Other)
  Sender: BRISTOL-MYERS SQUIBB COMPANY
  Company Number: JP-BRISTOL-MYERS SQUIBB COMPANY-2025-016144

PATIENT
  Age: 77 Year
  Sex: Male
  Weight: 64.5 kg

DRUGS (8)
  1. ABRAXANE [Suspect]
     Active Substance: PACLITAXEL
     Indication: Lung adenocarcinoma recurrent
     Dosage: DOSE NOT REPORTED/DAY, ON DAYS 1 AND 8 OF EACH 21-DAY CYCLE
     Route: 041
     Dates: start: 20231018, end: 20240529
  2. AMBROXOL [Concomitant]
     Active Substance: AMBROXOL
     Indication: Product used for unknown indication
     Route: 048
  3. EDOXABAN TOSYLATE [Concomitant]
     Active Substance: EDOXABAN TOSYLATE
     Indication: Product used for unknown indication
     Route: 048
  4. MIYA-BM [Concomitant]
     Active Substance: CLOSTRIDIUM BUTYRICUM SPORES STRAIN M-55
     Indication: Product used for unknown indication
     Route: 048
  5. ROSUVASTATIN [Concomitant]
     Active Substance: ROSUVASTATIN
     Indication: Product used for unknown indication
     Route: 048
  6. BISOPROLOL FUMARATE [Concomitant]
     Active Substance: BISOPROLOL FUMARATE
     Indication: Product used for unknown indication
     Route: 048
  7. ESOMEPRAZOLE [Concomitant]
     Active Substance: ESOMEPRAZOLE
     Indication: Product used for unknown indication
     Route: 048
  8. CIFENLINE [Concomitant]
     Active Substance: CIFENLINE
     Indication: Product used for unknown indication
     Route: 048

REACTIONS (6)
  - Myelodysplastic syndrome [Not Recovered/Not Resolved]
  - Neutropenia [Unknown]
  - Anaemia [Unknown]
  - Platelet count decreased [Unknown]
  - Respiratory failure [Unknown]
  - Off label use [Unknown]

NARRATIVE: CASE EVENT DATE: 20240716
